FAERS Safety Report 4641357-6 (Version None)
Quarter: 2005Q2

REPORT INFORMATION
  Report Type: 
  Country: None (occurrence: None)
  Receive Date: 20050419
  Receipt Date: 20050404
  Transmission Date: 20051028
  Serious: Yes (Other)
  Sender: FDA-Public Use
  Company Number: B0376776A

PATIENT
  Age: 31 Year
  Sex: Female

DRUGS (1)
  1. AMOXICILLIN TRIHYDRATE                 (AMOXICILLIN) [Suspect]
     Indication: PHARYNGITIS
     Dosage: ORAL
     Route: 048

REACTIONS (6)
  - ANAPHYLACTIC SHOCK [None]
  - COLOUR VISION TESTS ABNORMAL [None]
  - HYPOKALAEMIA [None]
  - OPTIC ATROPHY [None]
  - VISUAL DISTURBANCE [None]
  - VISUAL FIELD DEFECT [None]
